FAERS Safety Report 6077442-4 (Version None)
Quarter: 2009Q1

REPORT INFORMATION
  Report Type: 
  Country: None (occurrence: None)
  Receive Date: 20090213
  Receipt Date: 20081028
  Transmission Date: 20090719
  Serious: No
  Sender: FDA-Public Use
  Company Number: A0753875A

PATIENT
  Age: 49 Year
  Sex: Female

DRUGS (4)
  1. TREXIMET [Suspect]
     Indication: MIGRAINE
     Dosage: 1TAB AS REQUIRED
     Route: 048
     Dates: start: 20081025
  2. ENBREL [Concomitant]
  3. PLAQUENIL [Concomitant]
  4. SYNTHROID [Concomitant]

REACTIONS (2)
  - DRY MOUTH [None]
  - FEELING ABNORMAL [None]
